FAERS Safety Report 24394142 (Version 6)
Quarter: 2025Q3

REPORT INFORMATION
  Report Type: Report from Study
  Country: EU (occurrence: EU)
  Receive Date: 20241003
  Receipt Date: 20250915
  Transmission Date: 20251020
  Serious: Yes (Other)
  Sender: TAKEDA
  Company Number: EU-TAKEDA-2024TUS096977

PATIENT
  Age: 24 Year
  Sex: Female
  Weight: 78 kg

DRUGS (16)
  1. APADAMTASE ALFA [Suspect]
     Active Substance: APADAMTASE ALFA
     Indication: Thrombotic thrombocytopenic purpura
     Dosage: 40 INTERNATIONAL UNIT/KILOGRAM, Q2WEEKS
     Dates: start: 20231117
  2. APADAMTASE ALFA [Suspect]
     Active Substance: APADAMTASE ALFA
     Indication: Prophylaxis
     Dosage: 43.1 INTERNATIONAL UNIT/KILOGRAM, Q2WEEKS
     Dates: start: 20240613, end: 20240613
  3. APADAMTASE ALFA [Suspect]
     Active Substance: APADAMTASE ALFA
     Dosage: 43.1 INTERNATIONAL UNIT/KILOGRAM, Q2WEEKS
     Dates: start: 20240627, end: 20240627
  4. APADAMTASE ALFA [Suspect]
     Active Substance: APADAMTASE ALFA
     Dosage: 43.1 INTERNATIONAL UNIT/KILOGRAM, Q2WEEKS
     Dates: start: 20240711, end: 20240711
  5. APADAMTASE ALFA [Suspect]
     Active Substance: APADAMTASE ALFA
     Dosage: 43.1 INTERNATIONAL UNIT/KILOGRAM, Q2WEEKS
     Dates: start: 20240725, end: 20240725
  6. APADAMTASE ALFA [Suspect]
     Active Substance: APADAMTASE ALFA
     Dosage: 43.1 INTERNATIONAL UNIT/KILOGRAM, Q2WEEKS
     Dates: start: 20240808, end: 20240808
  7. APADAMTASE ALFA [Suspect]
     Active Substance: APADAMTASE ALFA
     Dosage: 41.5 INTERNATIONAL UNIT/KILOGRAM, Q2WEEKS
     Dates: start: 20250612, end: 20250612
  8. APADAMTASE ALFA [Suspect]
     Active Substance: APADAMTASE ALFA
     Dosage: 41.5 INTERNATIONAL UNIT/KILOGRAM, Q2WEEKS
     Dates: start: 20250626, end: 20250626
  9. APADAMTASE ALFA [Suspect]
     Active Substance: APADAMTASE ALFA
     Dosage: 41.5 INTERNATIONAL UNIT/KILOGRAM, Q2WEEKS
     Dates: start: 20250710, end: 20250710
  10. APADAMTASE ALFA [Suspect]
     Active Substance: APADAMTASE ALFA
     Dosage: 41.5 INTERNATIONAL UNIT/KILOGRAM, Q2WEEKS
     Dates: start: 20250724, end: 20250724
  11. LEVOTHYROXINE [Concomitant]
     Active Substance: LEVOTHYROXINE
     Indication: Hypothyroidism
     Dosage: 25 MILLIGRAM, QD
     Dates: start: 202203
  12. DOXAZOSIN [Concomitant]
     Active Substance: DOXAZOSIN MESYLATE
     Indication: Hypertension
     Dosage: 2 MILLIGRAM, QD
     Dates: start: 201609
  13. METOPROLOL [Concomitant]
     Active Substance: METOPROLOL
     Indication: Hypertension
  14. AMLODIPINE [Concomitant]
     Active Substance: AMLODIPINE BESYLATE
     Indication: Hypertension
     Dosage: 5 MILLIGRAM, QD
     Dates: start: 201511
  15. AMLODIPINE [Concomitant]
     Active Substance: AMLODIPINE BESYLATE
  16. METOPROLOL TARTRATE [Concomitant]
     Active Substance: METOPROLOL TARTRATE
     Indication: Hypertension
     Dosage: 50 MILLIGRAM, QD
     Dates: start: 201511

REACTIONS (2)
  - Abortion spontaneous [Recovered/Resolved]
  - Pregnancy [Recovered/Resolved]

NARRATIVE: CASE EVENT DATE: 20240813
